FAERS Safety Report 5692912-6 (Version None)
Quarter: 2008Q2

REPORT INFORMATION
  Report Type: 
  Country: None (occurrence: None)
  Receive Date: 20080327
  Receipt Date: 20080110
  Transmission Date: 20081010
  Serious: Yes (Hospitalization)
  Sender: FDA-Public Use
  Company Number: A03200800106

PATIENT
  Age: 27 Year
  Sex: Male

DRUGS (4)
  1. AMBIEN CR [Suspect]
     Indication: INSOMNIA
     Dosage: ORAL
     Route: 048
     Dates: start: 20070701, end: 20070701
  2. EFFEXOR [Suspect]
     Dosage: ORAL
     Route: 048
  3. XANAX [Suspect]
  4. ALCOHOL - LIQUID [Suspect]
     Dosage: ORAL
     Route: 048

REACTIONS (5)
  - ACCIDENTAL OVERDOSE [None]
  - AMNESIA [None]
  - DEPRESSED LEVEL OF CONSCIOUSNESS [None]
  - SLEEP TALKING [None]
  - SOMNAMBULISM [None]
